FAERS Safety Report 16688393 (Version 2)
Quarter: 2019Q3

REPORT INFORMATION
  Report Type: Spontaneous
  Country: IT (occurrence: IT)
  Receive Date: 20190809
  Receipt Date: 20190923
  Transmission Date: 20191004
  Serious: Yes (Hospitalization, Other)
  Sender: FDA-Public Use
  Company Number: IT-GLAXOSMITHKLINE-IT2019EME142656

PATIENT

DRUGS (1)
  1. NUCALA [Suspect]
     Active Substance: MEPOLIZUMAB
     Indication: PRODUCT USED FOR UNKNOWN INDICATION
     Dosage: 100 MG, Z, EVERY 28 DAYS

REACTIONS (6)
  - Chest pain [Unknown]
  - Acute coronary syndrome [Unknown]
  - Asthenia [Unknown]
  - Angina unstable [Unknown]
  - Myocardial infarction [Unknown]
  - Malaise [Unknown]
